FAERS Safety Report 16526916 (Version 1)
Quarter: 2019Q3

REPORT INFORMATION
  Report Type: Spontaneous
  Country: IT (occurrence: IT)
  Receive Date: 20190703
  Receipt Date: 20190703
  Transmission Date: 20191004
  Serious: Yes (Other)
  Sender: FDA-Public Use
  Company Number: PHHY2019IT128611

PATIENT
  Age: 72 Year
  Sex: Female

DRUGS (6)
  1. PAZOPANIB [Suspect]
     Active Substance: PAZOPANIB
     Indication: METASTASES TO LYMPH NODES
  2. PAZOPANIB [Suspect]
     Active Substance: PAZOPANIB
     Indication: METASTASES TO PANCREAS
  3. SAMYR [Concomitant]
     Active Substance: ADEMETIONINE
     Indication: PRODUCT USED FOR UNKNOWN INDICATION
     Dosage: 1 DF, BID, AT 8 AND 20 HRS
     Route: 065
     Dates: start: 20190531, end: 20190616
  4. PANTOPRAZOLE [Concomitant]
     Active Substance: PANTOPRAZOLE
     Indication: PRODUCT USED FOR UNKNOWN INDICATION
     Dosage: 1 DF, QD (IN THE MORNING)
     Route: 065
     Dates: start: 20190531, end: 20190616
  5. PAZOPANIB [Suspect]
     Active Substance: PAZOPANIB
     Indication: CLEAR CELL RENAL CELL CARCINOMA
     Dosage: 800 OT, QD
     Route: 065
  6. DEURSIL [Concomitant]
     Active Substance: URSODIOL
     Indication: PRODUCT USED FOR UNKNOWN INDICATION
     Dosage: 1 DF, BID, AT 8 AND 20 HRS
     Route: 065
     Dates: start: 20190531, end: 20190616

REACTIONS (24)
  - Blood alkaline phosphatase increased [Unknown]
  - Lymph node calcification [Unknown]
  - Nausea [Unknown]
  - Gallbladder enlargement [Unknown]
  - Amylase increased [Unknown]
  - Emphysema [Unknown]
  - Biliary cyst [Not Recovered/Not Resolved]
  - Bone lesion [Not Recovered/Not Resolved]
  - Necrosis [Unknown]
  - Abdominal pain [Unknown]
  - Aspartate aminotransferase increased [Unknown]
  - Blood creatine phosphokinase increased [Unknown]
  - Renal disorder [Unknown]
  - Pancreatic steatosis [Unknown]
  - Blood bilirubin increased [Unknown]
  - Alanine aminotransferase increased [Unknown]
  - Gamma-glutamyltransferase increased [Unknown]
  - Pancreatitis [Not Recovered/Not Resolved]
  - Pancreatic neoplasm [Unknown]
  - Jaundice [Unknown]
  - Transaminases increased [Unknown]
  - Hepatic mass [Not Recovered/Not Resolved]
  - Oedema [Unknown]
  - Bilirubin conjugated increased [Unknown]

NARRATIVE: CASE EVENT DATE: 20190520
